FAERS Safety Report 4832467-9 (Version None)
Quarter: 2005Q4

REPORT INFORMATION
  Report Type: 
  Country: None (occurrence: None)
  Receive Date: 20051121
  Receipt Date: 20041013
  Transmission Date: 20060501
  Serious: No
  Sender: FDA-Public Use
  Company Number: US-BRISTOL-MYERS SQUIBB COMPANY-12730750

PATIENT
  Age: 57 Year
  Sex: Male

DRUGS (4)
  1. VEPESID [Suspect]
     Indication: LUNG NEOPLASM
     Route: 042
     Dates: start: 20041013, end: 20041013
  2. VEPESID [Suspect]
     Indication: BRONCHIAL NEOPLASM
     Route: 042
     Dates: start: 20041013, end: 20041013
  3. CARBOPLATIN [Concomitant]
  4. ONDANSETRON [Concomitant]
     Indication: PROPHYLAXIS
     Route: 042
     Dates: start: 20041013, end: 20041013

REACTIONS (1)
  - EXTRAVASATION [None]
